FAERS Safety Report 19728912 (Version 1)
Quarter: 2021Q3

REPORT INFORMATION
  Report Type: Spontaneous
  Country: IN (occurrence: IN)
  Receive Date: 20210820
  Receipt Date: 20210820
  Transmission Date: 20211014
  Serious: Yes (Death)
  Sender: FDA-Public Use
  Company Number: IN-PFIZER INC-2019342078

PATIENT
  Age: 57 Year
  Sex: Female
  Weight: 71 kg

DRUGS (2)
  1. PALBACE [Suspect]
     Active Substance: PALBOCICLIB
     Indication: BREAST CANCER METASTATIC
     Dosage: 125 MG, CYCLIC (ONCE DAILY FOR 21 DAYS + 7 DAYS OFF FOR 3 MONTHS)
     Route: 048
     Dates: start: 20180623
  2. LETROZOLE. [Concomitant]
     Active Substance: LETROZOLE
     Dosage: 12.5 MG, DAILY (FOR 90 DAYS)

REACTIONS (6)
  - Neoplasm progression [Fatal]
  - Oxygen saturation decreased [Unknown]
  - Thrombocytosis [Unknown]
  - Heart rate increased [Unknown]
  - Haemoglobin decreased [Unknown]
  - Lung disorder [Fatal]

NARRATIVE: CASE EVENT DATE: 20191208
